FAERS Safety Report 5903171-0 (Version None)
Quarter: 2008Q3

REPORT INFORMATION
  Report Type: 
  Country: None (occurrence: None)
  Receive Date: 20080929
  Receipt Date: 20080929
  Transmission Date: 20090109
  Serious: Yes (Other)
  Sender: FDA-Public Use
  Company Number: None

PATIENT
  Sex: Male
  Weight: 81.6475 kg

DRUGS (4)
  1. LEVAQUIN [Suspect]
     Indication: STAPHYLOCOCCAL SKIN INFECTION
     Dosage: ONE 500 MG TABLET ONCE PER DAY PO
     Route: 048
     Dates: start: 20080920, end: 20080921
  2. ZOLOFT [Concomitant]
  3. ZETIA [Concomitant]
  4. CEPHALEXIN [Concomitant]

REACTIONS (6)
  - CONFUSIONAL STATE [None]
  - NERVOUS SYSTEM DISORDER [None]
  - NEUROPATHY PERIPHERAL [None]
  - PARAESTHESIA [None]
  - TENDONITIS [None]
  - TREMOR [None]
